FAERS Safety Report 8903167 (Version 1)
Quarter: 2012Q4

REPORT INFORMATION
  Report Type: 
  Country: US (occurrence: US)
  Receive Date: 20121113
  Receipt Date: 20121113
  Transmission Date: 20130627
  Serious: Yes (Other)
  Sender: FDA-Public Use
  Company Number: US-PFIZER INC-2012278137

PATIENT
  Age: 66 Year
  Sex: Male
  Weight: 81.63 kg

DRUGS (9)
  1. VIAGRA [Suspect]
     Indication: ERECTILE DYSFUNCTION
     Dosage: 100 mg, as needed
     Route: 048
  2. GABAPENTIN [Suspect]
     Indication: NERVE PAIN
     Dosage: UNK
     Dates: start: 2012, end: 2012
  3. LYRICA [Suspect]
     Indication: NERVE PAIN
     Dosage: 75 mg, 2x/day
     Route: 048
     Dates: start: 201210, end: 201210
  4. LYRICA [Suspect]
     Dosage: 150 mg, 2x/day
     Route: 048
  5. LYRICA [Suspect]
     Dosage: 150 mg, 3x/day
     Route: 048
     Dates: start: 201210, end: 2012
  6. LYRICA [Suspect]
     Dosage: 150 mg, 2x/day
     Route: 048
     Dates: start: 2012
  7. LYRICA [Suspect]
     Dosage: 150 mg, UNK
     Route: 048
  8. TESTOSTERONE [Concomitant]
     Dosage: UNK, 2x/month
  9. LOVASTATIN [Concomitant]
     Indication: HIGH CHOLESTEROL
     Dosage: UNK

REACTIONS (7)
  - Back disorder [Unknown]
  - Dizziness [Recovered/Resolved]
  - Somnolence [Not Recovered/Not Resolved]
  - Neuralgia [Unknown]
  - Ejaculation failure [Unknown]
  - Drug ineffective [Unknown]
  - Drug ineffective [Unknown]
